FAERS Safety Report 5168881-4 (Version None)
Quarter: 2006Q4

REPORT INFORMATION
  Report Type: 
  Country: None (occurrence: None)
  Receive Date: 20061206
  Receipt Date: 20061206
  Transmission Date: 20070319
  Serious: Yes (Hospitalization)
  Sender: FDA-Public Use
  Company Number: None

PATIENT
  Age: 44 Year
  Sex: Female
  Weight: 75.3 kg

DRUGS (1)
  1. PREDNISONE TAB [Suspect]
     Indication: RESPIRATORY DISORDER
     Dosage: 40 MG ORAL Q DAY
     Dates: start: 20060415, end: 20060518

REACTIONS (3)
  - PHARYNGOLARYNGEAL PAIN [None]
  - RASH [None]
  - WEIGHT INCREASED [None]
